FAERS Safety Report 7489274-0 (Version None)
Quarter: 2011Q2

REPORT INFORMATION
  Report Type: 
  Country: None (occurrence: None)
  Receive Date: 20110518
  Receipt Date: 20110512
  Transmission Date: 20111010
  Serious: Yes (Hospitalization)
  Sender: FDA-Public Use
  Company Number: DE-PFIZER INC-2011102803

PATIENT
  Age: 61 Year
  Sex: Male

DRUGS (4)
  1. TORISEL [Suspect]
     Indication: HEAD AND NECK CANCER
     Dosage: 25 MG, WEEKLY
     Route: 042
     Dates: start: 20110413, end: 20110504
  2. ESOMEPRAZOLE [Concomitant]
     Dosage: UNK
     Dates: start: 20100929
  3. METAMIZOLE [Concomitant]
     Dosage: UNK
     Dates: start: 20110329
  4. EMBOLEX [Concomitant]
     Dosage: UNK
     Dates: start: 20110121

REACTIONS (1)
  - SEPSIS [None]
